FAERS Safety Report 7214351-9 (Version None)
Quarter: 2011Q1

REPORT INFORMATION
  Report Type: 
  Country: None (occurrence: None)
  Receive Date: 20110107
  Receipt Date: 20110105
  Transmission Date: 20110831
  Serious: Yes (Death, Hospitalization, Other)
  Sender: FDA-Public Use
  Company Number: PHHY2009CA24394

PATIENT
  Sex: Female

DRUGS (17)
  1. EXJADE [Suspect]
     Dosage: 750 MG, UNK
     Dates: start: 20090810, end: 20090816
  2. EXJADE [Suspect]
     Dosage: 1250 MG, QD
     Route: 048
     Dates: start: 20100201
  3. ACTONEL [Concomitant]
     Dosage: 150 MG
     Route: 048
  4. REACTINE [Concomitant]
  5. CYCLOSPORINE [Concomitant]
     Dosage: 100 MG, QD
     Route: 048
  6. VITAMIN D [Concomitant]
  7. ACTONEL [Concomitant]
     Indication: OSTEOPOROSIS
     Dosage: 35 MG, UNK
     Route: 048
  8. EXJADE [Suspect]
     Indication: MYELODYSPLASTIC SYNDROME
     Dosage: 750 MG, DAILY
     Route: 048
     Dates: start: 20090612, end: 20090705
  9. POTASSIUM [Concomitant]
  10. EXJADE [Suspect]
     Indication: IRON OVERLOAD
     Dosage: 500 MG, QD
     Route: 048
     Dates: start: 20070601
  11. EXJADE [Suspect]
     Dosage: 250 MG, UNK
     Dates: start: 20091110
  12. ASCORBIC ACID [Concomitant]
  13. ACETAMINOPHEN [Concomitant]
  14. SOLU-CORTEF [Concomitant]
  15. EXJADE [Suspect]
     Dosage: 1000 MG, QD
     Route: 048
     Dates: start: 20100201
  16. EXJADE [Suspect]
     Dosage: 500 MG, UNK
  17. EXJADE [Suspect]
     Dosage: 750 MG, DAILY
     Dates: start: 20090521

REACTIONS (25)
  - NAUSEA [None]
  - COUGH [None]
  - PANCYTOPENIA [None]
  - PHARYNGEAL ERYTHEMA [None]
  - DYSARTHRIA [None]
  - SEPSIS [None]
  - ABDOMINAL DISTENSION [None]
  - CHEST PAIN [None]
  - BURNING SENSATION [None]
  - ARTHRALGIA [None]
  - HEADACHE [None]
  - NEOPLASM MALIGNANT [None]
  - BLOOD IRON INCREASED [None]
  - DYSPHONIA [None]
  - BLOOD PRESSURE INCREASED [None]
  - DEATH [None]
  - PYREXIA [None]
  - INSOMNIA [None]
  - PRURITUS GENERALISED [None]
  - MYALGIA [None]
  - ABDOMINAL PAIN UPPER [None]
  - DIARRHOEA [None]
  - VISION BLURRED [None]
  - THROAT TIGHTNESS [None]
  - RESPIRATORY TRACT CONGESTION [None]
